FAERS Safety Report 9533670 (Version 1)
Quarter: 2013Q3

REPORT INFORMATION
  Report Type: Spontaneous
  Country: PE (occurrence: PE)
  Receive Date: 20130918
  Receipt Date: 20130918
  Transmission Date: 20140515
  Serious: Yes (Death)
  Sender: FDA-Public Use
  Company Number: PE-JNJFOC-20130909115

PATIENT
  Age: 85 Year
  Sex: Male

DRUGS (1)
  1. ZYTIGA [Suspect]
     Indication: PROSTATE CANCER METASTATIC
     Route: 048
     Dates: start: 201307

REACTIONS (1)
  - Asthenia [Fatal]
